FAERS Safety Report 5761025-7 (Version None)
Quarter: 2008Q2

REPORT INFORMATION
  Report Type: 
  Country: None (occurrence: None)
  Receive Date: 20080606
  Receipt Date: 20080530
  Transmission Date: 20081010
  Serious: Yes (Hospitalization)
  Sender: FDA-Public Use
  Company Number: FR-AVENTIS-200811504FR

PATIENT
  Age: 61 Year
  Sex: Female

DRUGS (3)
  1. FLAGYL [Suspect]
     Route: 048
     Dates: start: 20080208, end: 20080215
  2. NIFUROXAZIDE [Suspect]
     Route: 048
     Dates: start: 20080208, end: 20080215
  3. PINAVERIUM TEVA [Concomitant]
     Route: 048
     Dates: start: 20080208, end: 20080215

REACTIONS (1)
  - ACUTE GENERALISED EXANTHEMATOUS PUSTULOSIS [None]
